FAERS Safety Report 11698230 (Version 7)
Quarter: 2017Q2

REPORT INFORMATION
  Report Type: Spontaneous
  Country: US (occurrence: US)
  Receive Date: 20151104
  Receipt Date: 20170629
  Transmission Date: 20170829
  Serious: Yes (Congenital Anomaly, Other)
  Sender: FDA-Public Use
  Company Number: PHEH2015US022409

PATIENT
  Sex: Male

DRUGS (3)
  1. ONDANSETRONE DR. REDDY^S [Suspect]
     Active Substance: ONDANSETRON HYDROCHLORIDE
     Indication: FOETAL EXPOSURE DURING PREGNANCY
     Dosage: MOTHER DOSE: 1 DF, TID
     Route: 064
  2. ZOFRAN [Suspect]
     Active Substance: ONDANSETRON HYDROCHLORIDE
     Indication: FOETAL EXPOSURE DURING PREGNANCY
     Dosage: MOTHER DOSE FREQUENCY: AS NEEDED (PRN)
     Route: 064
  3. ONDANSETRON [Suspect]
     Active Substance: ONDANSETRON
     Indication: FOETAL EXPOSURE DURING PREGNANCY
     Dosage: MOTHER^S DOSE: 4 MG, TID
     Route: 064

REACTIONS (32)
  - Congenital anomaly [Unknown]
  - Right ventricular hypertension [Unknown]
  - Renal tubular necrosis [Unknown]
  - Pain [Unknown]
  - Atrial septal defect [Unknown]
  - Hydronephrosis [Unknown]
  - Scar [Unknown]
  - Anaemia [Unknown]
  - Anastomotic stenosis [Unknown]
  - Tricuspid valve incompetence [Unknown]
  - Right ventricular enlargement [Unknown]
  - Emotional distress [Unknown]
  - Viral infection [Unknown]
  - Multiple congenital abnormalities [Unknown]
  - Congenital bladder anomaly [Unknown]
  - Injury [Unknown]
  - Anhedonia [Unknown]
  - Patent ductus arteriosus [Unknown]
  - Herpangina [Unknown]
  - Vesicoureteric reflux [Unknown]
  - Pyrexia [Unknown]
  - Pulmonary vein stenosis [Unknown]
  - Foetal exposure during pregnancy [Unknown]
  - Reflux nephropathy [Unknown]
  - Renal failure [Unknown]
  - Lung disorder [Unknown]
  - Vomiting [Unknown]
  - Constipation [Unknown]
  - Heart disease congenital [Unknown]
  - Anomalous pulmonary venous connection [Unknown]
  - Mitral valve incompetence [Unknown]
  - Anxiety [Unknown]
